FAERS Safety Report 7994536-4 (Version None)
Quarter: 2011Q4

REPORT INFORMATION
  Report Type: 
  Country: None (occurrence: None)
  Receive Date: 20111217
  Receipt Date: 20111217
  Transmission Date: 20120403
  Serious: No
  Sender: FDA-Public Use
  Company Number: None

PATIENT
  Sex: Male
  Weight: 94.5 kg

DRUGS (2)
  1. ELOXATIN [Suspect]
     Dosage: 500 MG
     Dates: end: 20060821
  2. FLUOROURACIL [Suspect]
     Dosage: 11250 MG
     Dates: end: 20060825

REACTIONS (2)
  - PANCYTOPENIA [None]
  - MYELODYSPLASTIC SYNDROME [None]
